FAERS Safety Report 13797552 (Version 3)
Quarter: 2018Q1

REPORT INFORMATION
  Report Type: Spontaneous
  Country: US (occurrence: US)
  Receive Date: 20170727
  Receipt Date: 20180209
  Transmission Date: 20180508
  Serious: Yes (Hospitalization, Other)
  Sender: FDA-Public Use
  Company Number: US-AMGEN-USASP2017111078

PATIENT
  Age: 16 Year
  Sex: Female
  Weight: 81.63 kg

DRUGS (7)
  1. ENBREL [Suspect]
     Active Substance: ETANERCEPT
     Indication: ANKYLOSING SPONDYLITIS
     Dosage: 25 MG, 2 TIMES/WK
     Route: 065
     Dates: start: 201703, end: 2017
  2. ENBREL [Suspect]
     Active Substance: ETANERCEPT
     Dosage: 25 MG, 2 TIMES/WK
     Route: 065
     Dates: start: 20171204, end: 20171207
  3. ENBREL [Suspect]
     Active Substance: ETANERCEPT
     Indication: RHEUMATOID ARTHRITIS
     Dosage: UNK
     Route: 065
  4. NAPROXEN. [Concomitant]
     Active Substance: NAPROXEN
     Indication: PRODUCT USED FOR UNKNOWN INDICATION
     Dosage: 500 MG, BID
     Route: 065
     Dates: end: 2017
  5. VALTREX [Concomitant]
     Active Substance: VALACYCLOVIR HYDROCHLORIDE
     Indication: PROPHYLAXIS
     Dosage: UNK
     Dates: end: 2017
  6. ENBREL [Suspect]
     Active Substance: ETANERCEPT
     Indication: JUVENILE IDIOPATHIC ARTHRITIS
     Dosage: UNK
     Route: 065
     Dates: start: 20170608, end: 2017
  7. VALTREX [Concomitant]
     Active Substance: VALACYCLOVIR HYDROCHLORIDE
     Dosage: UNK
     Dates: start: 2017

REACTIONS (24)
  - Juvenile idiopathic arthritis [Unknown]
  - Optic nerve disorder [Not Recovered/Not Resolved]
  - Nystagmus [Not Recovered/Not Resolved]
  - Sinus tachycardia [Unknown]
  - Nasopharyngitis [Recovering/Resolving]
  - Off label use [Unknown]
  - Fall [Unknown]
  - Ankylosing spondylitis [Unknown]
  - Dizziness [Unknown]
  - Facial nerve disorder [Not Recovered/Not Resolved]
  - Dehydration [Unknown]
  - Streptococcal urinary tract infection [Unknown]
  - Gastrointestinal viral infection [Unknown]
  - Dysphemia [Not Recovered/Not Resolved]
  - Central nervous system viral infection [Unknown]
  - Strabismus [Not Recovered/Not Resolved]
  - Influenza [Unknown]
  - Rheumatoid arthritis [Unknown]
  - Balance disorder [Unknown]
  - Vertigo [Unknown]
  - Herpes virus infection [Unknown]
  - Intracranial pressure increased [Unknown]
  - Pneumonia [Unknown]
  - Aphasia [Not Recovered/Not Resolved]

NARRATIVE: CASE EVENT DATE: 2017
